FAERS Safety Report 8486911-9 (Version None)
Quarter: 2012Q3

REPORT INFORMATION
  Report Type: 
  Country: None (occurrence: None)
  Receive Date: 20120704
  Receipt Date: 20120629
  Transmission Date: 20120928
  Serious: Yes (Death, Hospitalization)
  Sender: FDA-Public Use
  Company Number: KR-BAYER-2012-065130

PATIENT
  Age: 42 Year
  Sex: Male

DRUGS (9)
  1. PLACEBO [Suspect]
     Dosage: UNK
     Dates: start: 20120113, end: 20120205
  2. SORAFENIB (RAF KINASE INHIBITOR) [Suspect]
     Dosage: 400 MG, QD
     Dates: end: 20120411
  3. SORAFENIB (RAF KINASE INHIBITOR) [Suspect]
     Indication: HEPATIC NEOPLASM MALIGNANT
     Dosage: 800 MG, QD
     Route: 048
     Dates: start: 20110419, end: 20111207
  4. SORAFENIB (RAF KINASE INHIBITOR) [Suspect]
     Dosage: 400 MG, QD
     Dates: start: 20120113, end: 20120205
  5. PLACEBO [Suspect]
     Indication: HEPATIC NEOPLASM MALIGNANT
     Dosage: UNK
     Route: 048
     Dates: start: 20110419, end: 20111207
  6. BARACLUDE [Concomitant]
     Dosage: UNK
     Dates: start: 20100829
  7. ATACAND HCT [Concomitant]
     Dosage: UNK
     Dates: start: 20100828
  8. PLACEBO [Suspect]
     Dosage: UNK
     Dates: end: 20120411
  9. NORVASC [Concomitant]
     Dosage: UNK
     Dates: start: 20100828

REACTIONS (4)
  - HEPATIC NEOPLASM MALIGNANT [None]
  - PROTEINURIA [None]
  - HYPOALBUMINAEMIA [None]
  - BACK PAIN [None]
